FAERS Safety Report 8556747-9 (Version None)
Quarter: 2012Q3

REPORT INFORMATION
  Report Type: 
  Country: None (occurrence: None)
  Receive Date: 20120801
  Receipt Date: 20120719
  Transmission Date: 20120928
  Serious: Yes (Hospitalization)
  Sender: FDA-Public Use
  Company Number: GB-009507513-1203USA01997

PATIENT

DRUGS (12)
  1. DOXORUBICIN HYDROCHLORIDE [Suspect]
     Indication: MULTIPLE MYELOMA
     Dosage: 64 MG, QM
     Route: 042
     Dates: start: 20100927, end: 20101017
  2. DOXORUBICIN HYDROCHLORIDE [Suspect]
     Dosage: 64 MG, QD
     Route: 042
     Dates: start: 20101018, end: 20101109
  3. ENOXAPARIN SODIUM [Concomitant]
     Indication: PROPHYLAXIS
     Route: 058
     Dates: start: 20101109
  4. GABAPENTIN [Concomitant]
     Indication: ANALGESIC THERAPY
     Route: 048
     Dates: start: 20101024
  5. ACETAMINOPHEN [Concomitant]
     Indication: ANALGESIC THERAPY
     Route: 048
     Dates: start: 20101025
  6. VELCADE [Suspect]
     Indication: MULTIPLE MYELOMA
     Dosage: 2.4 MG/M2, QD
     Route: 042
     Dates: start: 20100927, end: 20101017
  7. AMOXICILLIN [Concomitant]
     Indication: ANTI-INFECTIVE THERAPY
     Route: 048
     Dates: start: 20101025
  8. DECADRON [Suspect]
     Dosage: 160 MG, QM
     Route: 048
     Dates: start: 20101018, end: 20101109
  9. VELCADE [Suspect]
     Dosage: 2.4 MG/M2, QD
     Route: 042
     Dates: start: 20101018, end: 20101109
  10. FUROSEMIDE [Concomitant]
     Indication: POLYURIA
     Route: 042
     Dates: start: 20101111, end: 20101112
  11. FUROSEMIDE [Concomitant]
     Route: 048
     Dates: start: 20101111
  12. DECADRON [Suspect]
     Indication: MULTIPLE MYELOMA
     Dosage: 160 MG, QM
     Route: 048
     Dates: start: 20100927, end: 20101017

REACTIONS (3)
  - DIARRHOEA [None]
  - MULTIPLE MYELOMA [None]
  - DRUG INEFFECTIVE [None]
